FAERS Safety Report 11216906 (Version 1)
Quarter: 2015Q2

REPORT INFORMATION
  Report Type: Spontaneous
  Country: US (occurrence: None)
  Receive Date: 20150623
  Receipt Date: 20150623
  Transmission Date: 20150821
  Serious: Yes (Hospitalization, Disabling)
  Sender: FDA-Public Use
  Company Number: None

PATIENT
  Age: 15 Year
  Weight: 77.11 kg

DRUGS (4)
  1. SEROQULE XR [Concomitant]
  2. METHYLPHENIDATE [Suspect]
     Active Substance: METHYLPHENIDATE
     Indication: SLEEP DISORDER
     Dosage: 30, ONCE DAILY TAKEN BY MOUTH
     Route: 048
     Dates: start: 20150202
  3. METHYLPHENIDATE [Suspect]
     Active Substance: METHYLPHENIDATE
     Indication: ATTENTION DEFICIT/HYPERACTIVITY DISORDER
     Dosage: 30, ONCE DAILY TAKEN BY MOUTH
     Route: 048
     Dates: start: 20150202
  4. TRILEPTAL [Concomitant]
     Active Substance: OXCARBAZEPINE

REACTIONS (8)
  - Incorrect route of drug administration [None]
  - Chest pain [None]
  - Drug abuse [None]
  - Dyspnoea [None]
  - Respiratory rate decreased [None]
  - Hypertension [None]
  - Heart rate irregular [None]
  - Thrombosis [None]

NARRATIVE: CASE EVENT DATE: 20150201
